FAERS Safety Report 6240127-5 (Version None)
Quarter: 2009Q2

REPORT INFORMATION
  Report Type: 
  Country: None (occurrence: None)
  Receive Date: 20090617
  Receipt Date: 20080226
  Transmission Date: 20091009
  Serious: No
  Sender: FDA-Public Use
  Company Number: 272638

PATIENT
  Age: 79 Year
  Sex: Female

DRUGS (3)
  1. LEVEMIR [Suspect]
     Indication: DIABETES MELLITUS
     Dosage: SLIDING SCALE, SUBCUTANEOUS
     Route: 058
     Dates: start: 20060901
  2. NOVOLOG [Suspect]
     Indication: DIABETES MELLITUS
     Dosage: SLIDING SCALE, SUBCUTANEOUS
     Route: 058
     Dates: start: 20060901
  3. TAMOXIFEN CITRATE [Concomitant]

REACTIONS (3)
  - BLOOD GLUCOSE FLUCTUATION [None]
  - FATIGUE [None]
  - FEELING COLD [None]
